FAERS Safety Report 5761373-0 (Version None)
Quarter: 2008Q2

REPORT INFORMATION
  Report Type: 
  Country: None (occurrence: None)
  Receive Date: 20080606
  Receipt Date: 20080604
  Transmission Date: 20081010
  Serious: Yes (Death)
  Sender: FDA-Public Use
  Company Number: US-ASTRAZENECA-2007UW07461

PATIENT
  Age: 71 Year
  Sex: Male

DRUGS (1)
  1. SEROQUEL [Suspect]
     Route: 048
     Dates: start: 20050412

REACTIONS (2)
  - NEUROLEPTIC MALIGNANT SYNDROME [None]
  - STREPTOCOCCAL SEPSIS [None]
